FAERS Safety Report 19609612 (Version 1)
Quarter: 2021Q3

REPORT INFORMATION
  Report Type: Spontaneous
  Country: NL (occurrence: IE)
  Receive Date: 20210726
  Receipt Date: 20210726
  Transmission Date: 20211014
  Serious: Yes (Life-Threatening, Other)
  Sender: FDA-Public Use
  Company Number: IE-FRESENIUS KABI-FK202107372

PATIENT

DRUGS (4)
  1. CYCLIZINE HYDROCHLORIDE [Suspect]
     Active Substance: CYCLIZINE HYDROCHLORIDE
     Indication: PRODUCT USED FOR UNKNOWN INDICATION
     Dosage: UNK, 1 UNIT (SINGLE DOSE)
     Route: 042
     Dates: start: 20210427, end: 20210427
  2. HYDROCORTISONE SODIUM SUCCINATE [Suspect]
     Active Substance: HYDROCORTISONE SODIUM SUCCINATE
     Indication: PRODUCT USED FOR UNKNOWN INDICATION
     Dosage: 0.9 PCT
     Route: 042
     Dates: start: 20210427
  3. SODIUM CHLORIDE 0.9% (MANUFACTURER UNKNOWN) [Suspect]
     Active Substance: SODIUM CHLORIDE
     Indication: PRODUCT USED FOR UNKNOWN INDICATION
     Dosage: 0.9 PERCENT W/V
     Route: 042
     Dates: start: 20210427
  4. SODIUM LACTATE/POTASSIUM CHLORIDE/SODIUM CHLORIDE/CALCIUM CHLORIDE DIHYDRATE [Suspect]
     Active Substance: CALCIUM CHLORIDE\POTASSIUM CHLORIDE\SODIUM CHLORIDE\SODIUM LACTATE
     Indication: PRODUCT USED FOR UNKNOWN INDICATION
     Dosage: UNK
     Route: 042
     Dates: start: 20210427

REACTIONS (3)
  - Intercepted medication error [Recovered/Resolved]
  - Product preparation issue [Recovered/Resolved]
  - Product deposit [Recovered/Resolved]

NARRATIVE: CASE EVENT DATE: 20210427
